FAERS Safety Report 7324342-5 (Version None)
Quarter: 2011Q1

REPORT INFORMATION
  Report Type: 
  Country: None (occurrence: None)
  Receive Date: 20110301
  Receipt Date: 20110228
  Transmission Date: 20110831
  Serious: Yes (Other)
  Sender: FDA-Public Use
  Company Number: BE-PFIZER INC-2011042698

PATIENT
  Age: 48 Year
  Sex: Male
  Weight: 100 kg

DRUGS (1)
  1. LYRICA [Suspect]
     Dosage: 300 MG, 1X/DAY
     Route: 048

REACTIONS (3)
  - OVERDOSE [None]
  - SOMNOLENCE [None]
  - PROSTHESIS IMPLANTATION [None]
